FAERS Safety Report 4413647-3 (Version None)
Quarter: 2004Q2

REPORT INFORMATION
  Report Type: 
  Country: None (occurrence: None)
  Receive Date: 20040630
  Receipt Date: 20040506
  Transmission Date: 20050107
  Serious: No
  Sender: FDA-Public Use
  Company Number: 04P-163-0259798-00

PATIENT
  Sex: Male
  Weight: 103.4201 kg

DRUGS (3)
  1. HUMIRA [Suspect]
     Indication: RHEUMATOID ARTHRITIS
     Dosage: 40 MG 1 IN 3 WK SUBCUTANEOUS
     Route: 058
     Dates: start: 20030401
  2. PREDNISONE TAB [Concomitant]
  3. PROPACET 100 [Concomitant]

REACTIONS (3)
  - HYPERHIDROSIS [None]
  - NAUSEA [None]
  - TREMOR [None]
